FAERS Safety Report 15227991 (Version 1)
Quarter: 2018Q3

REPORT INFORMATION
  Report Type: Spontaneous
  Country: US (occurrence: US)
  Receive Date: 20180706
  Receipt Date: 20180706
  Transmission Date: 20181010
  Serious: Yes (Life-Threatening, Disabling, Other)
  Sender: FDA-Public Use
  Company Number: None

PATIENT
  Age: 45 Year
  Sex: Female
  Weight: 65.25 kg

DRUGS (2)
  1. FLUOXETINE (GENERIC PROZAC) [Concomitant]
  2. LORAZEPAM (.5 MG) [Suspect]
     Active Substance: LORAZEPAM
     Indication: ANXIETY DISORDER
     Dosage: ?          QUANTITY:2 TABLET(S);?
     Route: 048
     Dates: start: 20150708, end: 20180613

REACTIONS (9)
  - Ear pain [None]
  - Bed rest [None]
  - Impaired quality of life [None]
  - Anger [None]
  - Pain in jaw [None]
  - Withdrawal syndrome [None]
  - Drug dependence [None]
  - Sensory disturbance [None]
  - Agitation [None]

NARRATIVE: CASE EVENT DATE: 20180605
